FAERS Safety Report 20560216 (Version 2)
Quarter: 2022Q1

REPORT INFORMATION
  Report Type: Report from Study
  Country: IT (occurrence: IT)
  Receive Date: 20220307
  Receipt Date: 20220323
  Transmission Date: 20220423
  Serious: Yes (Other)
  Sender: FDA-Public Use
  Company Number: IT-ROCHE-2474535

PATIENT
  Sex: Female

DRUGS (8)
  1. PREDNISONE [Suspect]
     Active Substance: PREDNISONE
     Indication: Product used for unknown indication
     Dosage: 100 MILLIGRAM, QD, (DAYS 1 TO 5)
     Route: 048
     Dates: start: 20190904
  2. VINCRISTINE [Suspect]
     Active Substance: VINCRISTINE
     Indication: Product used for unknown indication
     Dosage: 1.4 MILLIGRAM/SQ. METER (1,4 MG/M2, DAY 1, IV BOLUS)
     Route: 040
     Dates: start: 20190904
  3. CYCLOPHOSPHAMIDE [Suspect]
     Active Substance: CYCLOPHOSPHAMIDE
     Indication: Product used for unknown indication
     Dosage: 750 MILLIGRAM/SQ. METER,ON DAY 1, IV
     Route: 042
     Dates: start: 20190904
  4. OBINUTUZUMAB [Suspect]
     Active Substance: OBINUTUZUMAB
     Indication: Follicular lymphoma
     Dosage: UNK
  5. OBINUTUZUMAB [Suspect]
     Active Substance: OBINUTUZUMAB
     Dosage: 1000 MILLIGRAM, Q3W (THE DOSE OF OBINUTUZUMAB IS 1000 MG, ADMINISTERED ONCE EVERY 3 WEEKS)
     Route: 042
     Dates: start: 20190905
  6. OBINUTUZUMAB [Suspect]
     Active Substance: OBINUTUZUMAB
     Dosage: 1000 MILLIGRAM, Q3W
     Route: 042
     Dates: start: 20190905
  7. OBINUTUZUMAB [Suspect]
     Active Substance: OBINUTUZUMAB
     Dosage: 1000 MILLIGRAM, Q3W
     Route: 042
     Dates: start: 20190912
  8. OBINUTUZUMAB [Suspect]
     Active Substance: OBINUTUZUMAB
     Dosage: 1000 MILLIGRAM (03/OCT/2019; 07/NOV/2019; 28/NOV/2019; 09-GEN-20 ; 30-GEN-20 ; CYCLE 7 )
     Route: 042
     Dates: start: 20190919

REACTIONS (12)
  - Colitis [Recovered/Resolved]
  - Neutropenia [Recovered/Resolved]
  - Paraesthesia [Recovered/Resolved]
  - Fatigue [Recovered/Resolved]
  - Osteoarthritis [Not Recovered/Not Resolved]
  - Bone pain [Recovered/Resolved]
  - Dyspnoea [Recovered/Resolved]
  - Chalazion [Recovered/Resolved]
  - Abdominal pain [Recovered/Resolved]
  - Fall [Unknown]
  - Hypertension [Recovered/Resolved]
  - Off label use [Unknown]

NARRATIVE: CASE EVENT DATE: 20190919
